FAERS Safety Report 6071701-7 (Version None)
Quarter: 2009Q1

REPORT INFORMATION
  Report Type: 
  Country: None (occurrence: None)
  Receive Date: 20090210
  Receipt Date: 20090204
  Transmission Date: 20090719
  Serious: Yes (Hospitalization)
  Sender: FDA-Public Use
  Company Number: US-JNJFOC-20090201470

PATIENT
  Sex: Male
  Weight: 81.65 kg

DRUGS (6)
  1. DURAGESIC-100 [Suspect]
     Route: 062
  2. DURAGESIC-100 [Suspect]
     Route: 062
  3. DURAGESIC-100 [Suspect]
     Indication: PAIN IN EXTREMITY
     Dosage: 100 MCG + 50 MCG
     Route: 062
  4. FENTANYL TRANSDERMAL SYSTEM [Suspect]
     Indication: PAIN IN EXTREMITY
     Dosage: 100 MCG + 50 MCG
     Route: 062
  5. FENTANYL TRANSDERMAL SYSTEM [Suspect]
     Dosage: 100 MCG + 50 MCG
     Route: 062
  6. OXYCODONE HCL [Concomitant]
     Indication: PAIN
     Dosage: AS NEEDED
     Route: 048

REACTIONS (8)
  - EATING DISORDER [None]
  - HYPERHIDROSIS [None]
  - INADEQUATE ANALGESIA [None]
  - INAPPROPRIATE SCHEDULE OF DRUG ADMINISTRATION [None]
  - PNEUMONIA [None]
  - RESTLESSNESS [None]
  - TREMOR [None]
  - VOMITING [None]
